FAERS Safety Report 8978171 (Version 1)
Quarter: 2012Q4

REPORT INFORMATION
  Report Type: 
  Country: IT (occurrence: IT)
  Receive Date: 20121220
  Receipt Date: 20121220
  Transmission Date: 20130627
  Serious: Yes (Hospitalization)
  Sender: FDA-Public Use
  Company Number: IT-WATSON-2012-22372

PATIENT
  Age: 32 Year
  Sex: Female

DRUGS (1)
  1. ALPRAZOLAM ER [Suspect]
     Indication: INTENTIONAL SELF-INJURY
     Dosage: daily dose unknown - overdose with 30 doasge form total
     Route: 048
     Dates: start: 20121204, end: 20121204

REACTIONS (3)
  - Sopor [Recovered/Resolved]
  - Intentional drug misuse [Unknown]
  - Overdose [Unknown]
